FAERS Safety Report 16161208 (Version 1)
Quarter: 2019Q2

REPORT INFORMATION
  Report Type: Spontaneous
  Country: CH (occurrence: CH)
  Receive Date: 20190405
  Receipt Date: 20190405
  Transmission Date: 20190711
  Serious: Yes (Other)
  Sender: FDA-Public Use
  Company Number: CH-HORIZON-PRE-0152-2019

PATIENT
  Age: 58 Year
  Sex: Female
  Weight: 60 kg

DRUGS (2)
  1. LODOTRA [Suspect]
     Active Substance: PREDNISONE
     Indication: PRODUCT USED FOR UNKNOWN INDICATION
     Dosage: 20 MG DAILY
     Route: 048
     Dates: start: 20170404
  2. ORENCIA [Suspect]
     Active Substance: ABATACEPT
     Indication: RHEUMATOID ARTHRITIS
     Dosage: 125 MG WEEKLY
     Route: 058
     Dates: start: 20180529, end: 20180918

REACTIONS (5)
  - Septic shock [Unknown]
  - Agranulocytosis [Unknown]
  - Neutropenia [Unknown]
  - Colitis [Unknown]
  - Pseudomonas infection [Unknown]

NARRATIVE: CASE EVENT DATE: 20180918
